FAERS Safety Report 5938697 (Version 3)
Quarter: 2017Q1

REPORT INFORMATION
  Report Type: Spontaneous
  Country: JP (occurrence: JP)
  Receive Date: 20051209
  Receipt Date: 20170210
  Transmission Date: 20170429
  Serious: Yes (Hospitalization, Other)
  Sender: FDA-Public Use
  Company Number: JP-BRISTOL-MYERS SQUIBB COMPANY-13200563

PATIENT
  Sex: Female

DRUGS (1)
  1. KENACORT-A [Suspect]
     Active Substance: TRIAMCINOLONE
     Indication: RETINAL DETACHMENT
     Dosage: 20 MG, QD
     Route: 031
     Dates: start: 20041125, end: 20051125

REACTIONS (3)
  - Vitreous haemorrhage [Recovering/Resolving]
  - Glaucoma [Recovering/Resolving]
  - Endophthalmitis [Recovering/Resolving]
